FAERS Safety Report 20866341 (Version 1)
Quarter: 2022Q2

REPORT INFORMATION
  Report Type: Report from Study
  Country: US (occurrence: US)
  Receive Date: 20220524
  Receipt Date: 20220524
  Transmission Date: 20220720
  Serious: Yes (Hospitalization, Other)
  Sender: FDA-Public Use
  Company Number: US-BRISTOL-MYERS SQUIBB COMPANY-2022-042941

PATIENT
  Age: 81 Year
  Sex: Female

DRUGS (2)
  1. ELIQUIS [Suspect]
     Active Substance: APIXABAN
     Indication: Thrombosis
     Route: 048
  2. ELIQUIS [Suspect]
     Active Substance: APIXABAN
     Dosage: DOSE : 2.5MG;     FREQ : TWICE A DAY
     Route: 048

REACTIONS (6)
  - Wrong drug [Unknown]
  - Haemorrhage [Unknown]
  - Arthropathy [Unknown]
  - Tendon rupture [Unknown]
  - Illness [Unknown]
  - Somnolence [Unknown]
